FAERS Safety Report 17916776 (Version 2)
Quarter: 2020Q2

REPORT INFORMATION
  Report Type: Spontaneous
  Country: TW (occurrence: TW)
  Receive Date: 20200619
  Receipt Date: 20200626
  Transmission Date: 20200714
  Serious: Yes (Hospitalization, Other)
  Sender: FDA-Public Use
  Company Number: TW-ACCORD-185971

PATIENT
  Age: 48 Year
  Sex: Male
  Weight: 88.1 kg

DRUGS (6)
  1. CISPLATIN. [Concomitant]
     Active Substance: CISPLATIN
     Indication: TONSIL CANCER
     Dosage: ON DAY 1
     Dates: start: 201702, end: 2017
  2. DOCETAXEL. [Concomitant]
     Active Substance: DOCETAXEL
     Indication: TONSIL CANCER
     Dosage: ON DAY 1
     Dates: start: 201702, end: 2017
  3. FLUOROURACIL. [Suspect]
     Active Substance: FLUOROURACIL
     Indication: TONSIL CANCER
     Dosage: ON DAY 1 TO 5
     Route: 042
     Dates: start: 20170304, end: 20170308
  4. CISPLATIN. [Concomitant]
     Active Substance: CISPLATIN
     Indication: METASTASES TO NECK
     Dosage: ON DAY 1
     Dates: start: 20170304, end: 20170304
  5. FLUOROURACIL. [Suspect]
     Active Substance: FLUOROURACIL
     Indication: METASTASES TO NECK
     Dosage: ON DAY 1 TO 5
     Dates: start: 201702, end: 2017
  6. DOCETAXEL. [Concomitant]
     Active Substance: DOCETAXEL
     Indication: METASTASES TO NECK
     Dosage: ON DAY 1
     Dates: start: 20170304, end: 20170304

REACTIONS (6)
  - Palmar-plantar erythrodysaesthesia syndrome [Recovered/Resolved]
  - Rash [Recovered/Resolved]
  - Dysphagia [Recovered/Resolved]
  - Rash maculo-papular [Recovered/Resolved]
  - Drug hypersensitivity [Recovered/Resolved]
  - Stomatitis [Recovered/Resolved]

NARRATIVE: CASE EVENT DATE: 20170403
